FAERS Safety Report 19997008 (Version 6)
Quarter: 2022Q1

REPORT INFORMATION
  Report Type: Other
  Country: US (occurrence: None)
  Receive Date: 20211026
  Receipt Date: 20220211
  Transmission Date: 20220423
  Serious: Yes (Death, Hospitalization, Other)
  Sender: FDA-Public Use
  Company Number: US-ROCHE-2935978

PATIENT
  Sex: Male

DRUGS (11)
  1. OCREVUS [Suspect]
     Active Substance: OCRELIZUMAB
     Indication: Multiple sclerosis
     Dosage: DATE OF TREATMENT: 27/AUG/2020, 10/SEP/2020, 31/MAR/2021.?300 MG
     Route: 042
  2. CLONAZEPAM [Suspect]
     Active Substance: CLONAZEPAM
     Indication: Product used for unknown indication
     Dosage: 0.5 MG ORAL TABLET BID PRN
     Route: 048
  3. PREGABALIN [Concomitant]
     Active Substance: PREGABALIN
     Route: 048
  4. ARMODAFINIL [Concomitant]
     Active Substance: ARMODAFINIL
     Route: 048
  5. DULOXETINE [Concomitant]
     Active Substance: DULOXETINE
     Route: 048
  6. TIZANIDINE [Concomitant]
     Active Substance: TIZANIDINE
     Route: 048
  7. MEMANTINE [Concomitant]
     Active Substance: MEMANTINE
     Route: 048
  8. LINACLOTIDE [Concomitant]
     Active Substance: LINACLOTIDE
     Route: 048
  9. LOSARTAN [Concomitant]
     Active Substance: LOSARTAN
     Route: 048
  10. ROSUVASTATIN CALCIUM [Concomitant]
     Active Substance: ROSUVASTATIN CALCIUM
     Route: 048
  11. AMLODIPINE BESYLATE [Concomitant]
     Active Substance: AMLODIPINE BESYLATE
     Route: 048

REACTIONS (3)
  - COVID-19 pneumonia [Fatal]
  - Coma [Not Recovered/Not Resolved]
  - Encephalopathy [Unknown]
